FAERS Safety Report 7032454-9 (Version None)
Quarter: 2010Q4

REPORT INFORMATION
  Report Type: 
  Country: None (occurrence: None)
  Receive Date: 20101007
  Receipt Date: 20100412
  Transmission Date: 20110411
  Serious: Yes (Life-Threatening, Hospitalization)
  Sender: FDA-Public Use
  Company Number: TW-BRISTOL-MYERS SQUIBB COMPANY-15044555

PATIENT
  Age: 69 Year
  Sex: Male
  Weight: 58 kg

DRUGS (11)
  1. CETUXIMAB [Suspect]
     Indication: COLORECTAL CANCER
     Dosage: MOST RECENT INFU:16-MAR-2010 16MAR10-30MAR10 13APR10-ONG
     Route: 042
     Dates: start: 20100316
  2. IRINOTECAN HCL [Suspect]
     Indication: COLORECTAL CANCER
     Dosage: MOST RECENT INFU:16-MAR-2010 16MAR10-30MAR10:291MG/M2 13APR10-ONG:135MG/M2
     Route: 042
     Dates: start: 20100316
  3. FLUOROURACIL [Suspect]
     Indication: COLORECTAL CANCER
     Dosage: RECENT INF:16MAR10 16-30MAR10:400MGBOL,2400MG/46HR(4536MG,1IN2WK) 13APR10:300MG/M2BOL,1800MG/M2
     Route: 042
     Dates: start: 20100316
  4. FOLINIC ACID [Suspect]
     Indication: COLORECTAL CANCER
     Dosage: MOST RECENT INFU:16MAR10 16MAR10-30MAR10 13APR10-ONG
     Route: 042
     Dates: start: 20100316
  5. MAGNESIUM OXIDE [Concomitant]
     Indication: PROPHYLAXIS
     Dosage: 2TABS(250MG)
     Route: 048
     Dates: start: 19990219
  6. AMANTADINE HCL [Concomitant]
     Indication: PARKINSONISM
     Dosage: 1 DF-1/2 TAB(100MG)
     Route: 048
     Dates: start: 19970101
  7. ENTACAPONE [Concomitant]
     Indication: PARKINSONISM
     Dosage: 1DF-1TAB ENTACAPONE 200 MG
     Route: 048
     Dates: start: 19970101
  8. MADOPAR [Concomitant]
     Indication: PARKINSONISM
     Dosage: 2DF-2CAPS HS ALSO TAKEN AS TABS (1TAB TID)
     Route: 048
     Dates: start: 19970101
  9. TAMSULOSIN HCL [Concomitant]
     Indication: BENIGN PROSTATIC HYPERPLASIA
     Dosage: 0.2MG TABS
     Dates: start: 20100323
  10. ROPINIROLE [Concomitant]
     Indication: PARKINSONISM
     Dosage: 1DF-1TABS
     Route: 048
     Dates: start: 19970101
  11. CLONAZEPAM [Concomitant]
     Indication: PARKINSONISM
     Route: 048
     Dates: start: 19970101

REACTIONS (1)
  - FEBRILE NEUTROPENIA [None]
